FAERS Safety Report 13338878 (Version 2)
Quarter: 2017Q1

REPORT INFORMATION
  Report Type: Report from Study
  Country: FR (occurrence: FR)
  Receive Date: 20170315
  Receipt Date: 20170322
  Transmission Date: 20170428
  Serious: Yes (Other)
  Sender: FDA-Public Use
  Company Number: FR-ASTELLAS-2016US038724

PATIENT
  Age: 68 Year
  Sex: Female
  Weight: 64 kg

DRUGS (23)
  1. EUPRESSYL                          /00631801/ [Concomitant]
     Active Substance: URAPIDIL
     Indication: HYPERTENSION
     Route: 048
     Dates: start: 20151012
  2. KARDEGIC [Concomitant]
     Active Substance: ASPIRIN LYSINE
     Indication: ANTIPLATELET THERAPY
     Route: 048
     Dates: start: 20150608
  3. HYDROCORTISONE. [Concomitant]
     Active Substance: HYDROCORTISONE
     Indication: IMMUNOSUPPRESSANT DRUG THERAPY
     Route: 065
     Dates: start: 201511
  4. LASILIX                            /00032601/ [Concomitant]
     Active Substance: FUROSEMIDE
     Indication: HYPERTENSION
     Route: 048
     Dates: start: 20151026, end: 201510
  5. NOVORAPID [Concomitant]
     Active Substance: INSULIN ASPART
     Dosage: 28 IU, ONCE DAILY (DEPENDING ON CAPILLARY BLOOD GLUCOSE)
     Route: 048
     Dates: start: 201511, end: 201511
  6. LASILIX                            /00032601/ [Concomitant]
     Active Substance: FUROSEMIDE
     Route: 065
     Dates: start: 201510
  7. TAHOR [Concomitant]
     Active Substance: ATORVASTATIN CALCIUM
     Indication: HYPERCHOLESTEROLAEMIA
     Route: 048
     Dates: start: 20150608
  8. TACROLIMUS. [Suspect]
     Active Substance: TACROLIMUS
     Route: 048
     Dates: start: 20151020, end: 20151211
  9. TACROLIMUS. [Suspect]
     Active Substance: TACROLIMUS
     Dosage: 5.5 MG, DAILY
     Route: 065
     Dates: start: 20160601, end: 20160607
  10. LANTUS [Concomitant]
     Active Substance: INSULIN GLARGINE
     Indication: DIABETES MELLITUS
     Dosage: 16 IU, ONCE DAILY (DEPENDING ON CAPILLARY BLOOD GLUCOSE)
     Route: 048
     Dates: start: 20150609, end: 20151109
  11. NOVORAPID [Concomitant]
     Active Substance: INSULIN ASPART
     Indication: DIABETES MELLITUS
     Dosage: 52 IU, ONCE DAILY (DEPENDING ON CAPILLARY BLOOD GLUCOSE)
     Route: 048
     Dates: start: 20150624, end: 201511
  12. SODIUM BICARBONATE. [Concomitant]
     Active Substance: SODIUM BICARBONATE
     Indication: METABOLIC ACIDOSIS
     Route: 048
     Dates: start: 20150629, end: 20160215
  13. TACROLIMUS. [Suspect]
     Active Substance: TACROLIMUS
     Indication: RENAL TRANSPLANT
     Dosage: 5 MG, DAILY
     Route: 065
     Dates: start: 20151212, end: 20160108
  14. TACROLIMUS. [Suspect]
     Active Substance: TACROLIMUS
     Dosage: 4 MG, DAILY
     Dates: start: 20160608
  15. NOVORAPID [Concomitant]
     Active Substance: INSULIN ASPART
     Dosage: 30 IU, ONCE DAILY (DEPENDING ON CAPILLARY BLOOD GLUCOSE)
     Route: 048
     Dates: start: 201511, end: 20160215
  16. ESOMEPRAZOLE [Concomitant]
     Active Substance: ESOMEPRAZOLE
     Indication: GASTROOESOPHAGEAL REFLUX DISEASE
     Route: 048
     Dates: start: 20150606
  17. HYDROCORTISONE. [Concomitant]
     Active Substance: HYDROCORTISONE
     Indication: ADRENAL INSUFFICIENCY
     Route: 048
     Dates: start: 20151106
  18. TACROLIMUS. [Suspect]
     Active Substance: TACROLIMUS
     Indication: PROPHYLAXIS AGAINST TRANSPLANT REJECTION
     Route: 048
     Dates: start: 20151013
  19. PERINDOPRIL [Concomitant]
     Active Substance: PERINDOPRIL
     Indication: HYPERTENSION
     Route: 065
     Dates: start: 201601
  20. BACTRIM [Concomitant]
     Active Substance: SULFAMETHOXAZOLE\TRIMETHOPRIM
     Indication: PROPHYLAXIS
     Dosage: 800/160 MG, THRICE WEEKLY
     Route: 048
     Dates: start: 20150608, end: 20151204
  21. TACROLIMUS. [Suspect]
     Active Substance: TACROLIMUS
     Dosage: 6 MG, DAILY
     Route: 065
     Dates: start: 20160109, end: 20160531
  22. NOVORAPID [Concomitant]
     Active Substance: INSULIN ASPART
     Dosage: UNK, UNKNOWN FREQ.
     Route: 048
     Dates: start: 201602
  23. MYFORTIC [Concomitant]
     Active Substance: MYCOPHENOLATE SODIUM
     Indication: PROPHYLAXIS AGAINST TRANSPLANT REJECTION
     Route: 048
     Dates: start: 20150604

REACTIONS (14)
  - Visual impairment [Recovered/Resolved]
  - Oedema peripheral [Recovered/Resolved]
  - Diabetic ketoacidosis [Recovered/Resolved]
  - Dizziness [Recovered/Resolved]
  - Renal impairment [Recovering/Resolving]
  - Tremor [Recovered/Resolved]
  - Vascular graft stenosis [Recovered/Resolved]
  - Vomiting [Recovered/Resolved]
  - Constipation [Recovered/Resolved]
  - Asthenia [Recovered/Resolved]
  - Malaise [Recovered/Resolved]
  - Dizziness [Recovered/Resolved]
  - Nausea [Recovered/Resolved]
  - Osteoporotic fracture [Not Recovered/Not Resolved]

NARRATIVE: CASE EVENT DATE: 20151020
